FAERS Safety Report 7461517-9 (Version None)
Quarter: 2011Q2

REPORT INFORMATION
  Report Type: 
  Country: None (occurrence: None)
  Receive Date: 20110506
  Receipt Date: 20110426
  Transmission Date: 20111010
  Serious: Yes (Other)
  Sender: FDA-Public Use
  Company Number: US-US-EMD SERONO, INC.-7056263

PATIENT
  Sex: Female
  Weight: 64 kg

DRUGS (4)
  1. REBIF [Suspect]
     Indication: MULTIPLE SCLEROSIS
     Route: 058
     Dates: start: 20091201, end: 20100501
  2. REBIF [Suspect]
     Route: 058
     Dates: start: 20100823, end: 20110201
  3. REBIF [Suspect]
     Route: 058
     Dates: start: 20110201
  4. NEURONTIN [Concomitant]

REACTIONS (3)
  - CHEST PAIN [None]
  - RASH [None]
  - INJECTION SITE ERYTHEMA [None]
